FAERS Safety Report 13863120 (Version 2)
Quarter: 2018Q1

REPORT INFORMATION
  Report Type: Report from Study
  Country: US (occurrence: US)
  Receive Date: 20170814
  Receipt Date: 20180101
  Transmission Date: 20180508
  Serious: No
  Sender: FDA-Public Use
  Company Number: US-AMGEN-USASL2017120487

PATIENT
  Age: 57 Year
  Sex: Female

DRUGS (3)
  1. ENBREL [Suspect]
     Active Substance: ETANERCEPT
     Indication: CONNECTIVE TISSUE DISORDER
     Dosage: 50 MG, QWK
     Route: 058
  2. ENBREL [Suspect]
     Active Substance: ETANERCEPT
     Indication: PULMONARY ARTERIAL HYPERTENSION
  3. ENBREL [Suspect]
     Active Substance: ETANERCEPT
     Indication: MYALGIA

REACTIONS (4)
  - Off label use [Unknown]
  - Nausea [Unknown]
  - Headache [Unknown]
  - Skin infection [Unknown]
